FAERS Safety Report 9275064 (Version 3)
Quarter: 2013Q3

REPORT INFORMATION
  Report Type: Report from Study
  Country: AR (occurrence: AR)
  Receive Date: 20130507
  Receipt Date: 20130819
  Transmission Date: 20140515
  Serious: Yes (Hospitalization)
  Sender: FDA-Public Use
  Company Number: PHHY2013AR043658

PATIENT
  Sex: Female

DRUGS (1)
  1. ONBREZ [Suspect]
     Indication: CHRONIC OBSTRUCTIVE PULMONARY DISEASE
     Dosage: 150 UG, UNK

REACTIONS (4)
  - Lung infection [Recovering/Resolving]
  - Pneumonia [Recovering/Resolving]
  - Influenza [Recovering/Resolving]
  - Pyrexia [Recovering/Resolving]
